FAERS Safety Report 10408460 (Version 1)
Quarter: 2014Q3

REPORT INFORMATION
  Report Type: Spontaneous
  Country: US (occurrence: None)
  Receive Date: 20140825
  Receipt Date: 20140825
  Transmission Date: 20150326
  Serious: Yes (Death, Life-Threatening)
  Sender: FDA-Public Use
  Company Number: None

PATIENT
  Age: 77 Year
  Sex: Male
  Weight: 88 kg

DRUGS (16)
  1. METOPROLOL TARTRATE. [Concomitant]
     Active Substance: METOPROLOL TARTRATE
  2. METFORMIN [Concomitant]
     Active Substance: METFORMIN HYDROCHLORIDE
  3. ASPIRIN 81 MG [Concomitant]
     Active Substance: ASPIRIN
  4. MVI [Concomitant]
     Active Substance: VITAMINS
  5. OMEGA 3 [Concomitant]
     Active Substance: OMEGA-3 FATTY ACIDS
  6. INSULIN FLEX PEN [Concomitant]
  7. COENZYME Q10 [Concomitant]
     Active Substance: UBIDECARENONE
  8. EFFIENT [Concomitant]
     Active Substance: PRASUGREL HYDROCHLORIDE
  9. PRASUGREL [Suspect]
     Active Substance: PRASUGREL
  10. LOSARTAN [Concomitant]
     Active Substance: LOSARTAN
  11. RANEXA [Concomitant]
     Active Substance: RANOLAZINE
  12. SIMVASTATIN. [Concomitant]
     Active Substance: SIMVASTATIN
  13. IRON [Concomitant]
     Active Substance: IRON
  14. FOLATE [Concomitant]
     Active Substance: FOLATE SODIUM
  15. ASPIRIN. [Suspect]
     Active Substance: ASPIRIN
  16. RESVERATROL [Concomitant]
     Active Substance: RESVERATROL

REACTIONS (1)
  - Cerebral haemorrhage [None]

NARRATIVE: CASE EVENT DATE: 20140803
